FAERS Safety Report 21592568 (Version 1)
Quarter: 2022Q4

REPORT INFORMATION
  Report Type: Spontaneous
  Country: US (occurrence: None)
  Receive Date: 20221112
  Receipt Date: 20221112
  Transmission Date: 20230112
  Serious: No
  Sender: FDA-Public Use
  Company Number: None

PATIENT
  Sex: Female
  Weight: 117.48 kg

DRUGS (15)
  1. VOTRIENT [Suspect]
     Active Substance: PAZOPANIB HYDROCHLORIDE
     Indication: Uterine cancer
     Dosage: FREQUENCY : DAILY;?
     Route: 048
     Dates: start: 202111
  2. ATORVASTATIN [Concomitant]
     Active Substance: ATORVASTATIN
  3. CALTRATE WITH VITAMIN D [Concomitant]
     Active Substance: CALCIUM CARBONATE\CHOLECALCIFEROL
  4. FERROUS SULFATE [Concomitant]
     Active Substance: FERROUS SULFATE
  5. GLIMEPIRIDE [Concomitant]
     Active Substance: GLIMEPIRIDE
  6. HYDROXYZINE [Concomitant]
     Active Substance: HYDROXYZINE HYDROCHLORIDE
  7. HYDROCHLOROTHIAZIDE [Concomitant]
     Active Substance: HYDROCHLOROTHIAZIDE
  8. JANUVIA [Concomitant]
     Active Substance: SITAGLIPTIN PHOSPHATE
  9. LOSARTAN [Concomitant]
     Active Substance: LOSARTAN
  10. METFORMIN [Concomitant]
     Active Substance: METFORMIN HYDROCHLORIDE
  11. TRAMADOL [Concomitant]
     Active Substance: TRAMADOL
  12. VITAMIN B12 [Concomitant]
     Active Substance: CYANOCOBALAMIN
  13. VITAMIN C [Concomitant]
     Active Substance: ASCORBIC ACID
  14. VITAMIN D3 [Concomitant]
     Active Substance: CHOLECALCIFEROL
  15. ZINC ACETATE [Concomitant]
     Active Substance: ZINC ACETATE

REACTIONS (1)
  - Pulmonary mass [None]
